FAERS Safety Report 13288480 (Version 3)
Quarter: 2018Q2

REPORT INFORMATION
  Report Type: Other
  Country: IT (occurrence: IT)
  Receive Date: 20170302
  Receipt Date: 20180508
  Transmission Date: 20180711
  Serious: Yes (Hospitalization, Other)
  Sender: FDA-Public Use
  Company Number: IT-ASTELLAS-2017US006902

PATIENT
  Age: 54 Year
  Sex: Female

DRUGS (4)
  1. VANCOMYCIN [Suspect]
     Active Substance: VANCOMYCIN
     Indication: ANTIBIOTIC THERAPY
     Route: 065
  2. TACROLIMUS. [Suspect]
     Active Substance: TACROLIMUS
     Indication: RENAL TRANSPLANT
     Route: 065
  3. TOBRAMYCIN. [Suspect]
     Active Substance: TOBRAMYCIN
     Indication: ANTIBIOTIC THERAPY
     Route: 065
  4. TOBRAMYCIN. [Suspect]
     Active Substance: TOBRAMYCIN
     Route: 065

REACTIONS (20)
  - Venous stenosis [Unknown]
  - Pulmonary embolism [Unknown]
  - Renal vein thrombosis [Unknown]
  - Subclavian vein thrombosis [Unknown]
  - Pancreatic pseudocyst [Unknown]
  - Intra-abdominal fluid collection [Unknown]
  - Pulmonary infarction [Unknown]
  - Disseminated intravascular coagulation [Unknown]
  - Pneumonia [Recovered/Resolved]
  - Pleural effusion [Unknown]
  - Sepsis [Recovered/Resolved]
  - Pancreas infection [Recovered/Resolved]
  - Fungal peritonitis [Recovered/Resolved]
  - Venous thrombosis [Unknown]
  - Acinetobacter infection [Recovered/Resolved]
  - Catheter site infection [Recovered/Resolved]
  - Anaemia [Unknown]
  - Melaena [Unknown]
  - Pancreatitis acute [Unknown]
  - Systemic candida [Recovered/Resolved]
